FAERS Safety Report 18412563 (Version 2)
Quarter: 2022Q1

REPORT INFORMATION
  Report Type: Spontaneous
  Country: PT (occurrence: PT)
  Receive Date: 20201022
  Receipt Date: 20220324
  Transmission Date: 20220423
  Serious: Yes (Life-Threatening, Hospitalization, Other)
  Sender: FDA-Public Use
  Company Number: PT-PBIPT-2020-0080

PATIENT
  Age: 30 Year
  Sex: Female

DRUGS (1)
  1. OMEPRAZOLE [Suspect]
     Active Substance: OMEPRAZOLE
     Indication: Product used for unknown indication
     Dosage: 40 MILLIGRAM
     Route: 042

REACTIONS (3)
  - Kounis syndrome [Recovered/Resolved]
  - Anaphylactic reaction [Recovered/Resolved]
  - Polyserositis [Recovered/Resolved]
